FAERS Safety Report 17186950 (Version 1)
Quarter: 2019Q4

REPORT INFORMATION
  Report Type: Spontaneous
  Country: US (occurrence: US)
  Receive Date: 20191220
  Receipt Date: 20191220
  Transmission Date: 20200122
  Serious: Yes (Other)
  Sender: FDA-Public Use
  Company Number: US-PFIZER INC-2019551736

PATIENT
  Age: 59 Year
  Sex: Female

DRUGS (1)
  1. LYRICA [Suspect]
     Active Substance: PREGABALIN
     Dosage: UNK

REACTIONS (7)
  - Upper limb fracture [Unknown]
  - Sleep apnoea syndrome [Unknown]
  - Fall [Unknown]
  - Spinal stenosis [Unknown]
  - Wrist fracture [Unknown]
  - Joint injury [Unknown]
  - Ankle fracture [Unknown]

NARRATIVE: CASE EVENT DATE: 2018
